FAERS Safety Report 6377750-3 (Version None)
Quarter: 2009Q3

REPORT INFORMATION
  Report Type: 
  Country: None (occurrence: None)
  Receive Date: 20090921
  Receipt Date: 20090909
  Transmission Date: 20100115
  Serious: Yes (Hospitalization)
  Sender: FDA-Public Use
  Company Number: MC200900358

PATIENT

DRUGS (3)
  1. BIVALIRUDIN [Suspect]
     Indication: PERCUTANEOUS CORONARY INTERVENTION
     Dosage: 0.75 MG/KG, BOLUS, INTRAVENOUS, 1.25 MG/KG, HR, INTRAVENOUS
     Route: 042
  2. ASPIRIN [Concomitant]
  3. CLOPIDOGREL [Concomitant]

REACTIONS (4)
  - CHEST PAIN [None]
  - DIZZINESS [None]
  - MALAISE [None]
  - PUNCTURE SITE HAEMORRHAGE [None]
